FAERS Safety Report 4565342-8 (Version None)
Quarter: 2005Q1

REPORT INFORMATION
  Report Type: 
  Country: None (occurrence: None)
  Receive Date: 20050126
  Receipt Date: 20050107
  Transmission Date: 20050727
  Serious: Yes (Other)
  Sender: FDA-Public Use
  Company Number: GBS050116339

PATIENT
  Age: 39 Year
  Sex: Male

DRUGS (3)
  1. FLUOXETINE [Suspect]
     Indication: DEPRESSION
     Dosage: 20 MG DAY
     Route: 048
     Dates: start: 20040401
  2. FLECAINIDE ACETATE [Concomitant]
  3. SOTALOL HCL [Concomitant]

REACTIONS (4)
  - DEPRESSION [None]
  - DISEASE RECURRENCE [None]
  - DRUG INTERACTION [None]
  - SUPRAVENTRICULAR TACHYCARDIA [None]
